FAERS Safety Report 22220350 (Version 6)
Quarter: 2025Q4

REPORT INFORMATION
  Report Type: Report from Study
  Country: US (occurrence: US)
  Receive Date: 20230417
  Receipt Date: 20251117
  Transmission Date: 20260118
  Serious: Yes (Other)
  Sender: INCYTE
  Company Number: US-INCYTE CORPORATION-2023IN003682

PATIENT
  Age: 73 Year
  Weight: 56.49 kg

DRUGS (4)
  1. JAKAFI [Suspect]
     Active Substance: RUXOLITINIB
     Indication: Chronic graft versus host disease
     Dosage: 5 MILLIGRAM, BID
  2. JAKAFI [Suspect]
     Active Substance: RUXOLITINIB
     Dosage: 5 MILLIGRAM, BID
  3. JAKAFI [Suspect]
     Active Substance: RUXOLITINIB
     Dosage: UNK
     Route: 065
  4. REZUROCK [Suspect]
     Active Substance: BELUMOSUDIL
     Indication: Product used for unknown indication
     Dosage: 200 MILLIGRAM, QD
     Route: 065

REACTIONS (14)
  - Recurrent cancer [Unknown]
  - Chronic graft versus host disease [Unknown]
  - Orthostatic hypotension [Unknown]
  - Feeling abnormal [Unknown]
  - Insomnia [Unknown]
  - Burning sensation [Unknown]
  - Peripheral swelling [Unknown]
  - Hypoaesthesia [Unknown]
  - Erythema [Not Recovered/Not Resolved]
  - Eye irritation [Unknown]
  - Condition aggravated [Unknown]
  - Dizziness [Unknown]
  - Malaise [Unknown]
  - Balance disorder [Not Recovered/Not Resolved]
